FAERS Safety Report 15841921 (Version 1)
Quarter: 2019Q1

REPORT INFORMATION
  Report Type: Spontaneous
  Country: PT (occurrence: PT)
  Receive Date: 20190118
  Receipt Date: 20190118
  Transmission Date: 20190417
  Serious: Yes (Hospitalization, Other)
  Sender: FDA-Public Use
  Company Number: PT-SA-2019SA009766

PATIENT
  Age: 84 Year
  Sex: Female

DRUGS (1)
  1. BCG FOR IMMUNOTHERAPY [Suspect]
     Active Substance: BACILLUS CALMETTE-GUERIN ANTIGEN, UNSPECIFIED SUBSTRAIN
     Indication: BLADDER CANCER
     Dosage: UNK
     Route: 043

REACTIONS (12)
  - Lipase increased [Unknown]
  - Vomiting [Unknown]
  - Disseminated Bacillus Calmette-Guerin infection [Recovered/Resolved]
  - Pulmonary mass [Unknown]
  - Bacterial test positive [Recovered/Resolved]
  - Pyrexia [Recovered/Resolved]
  - Acute kidney injury [Unknown]
  - Amylase increased [Unknown]
  - Bacteraemia [Recovered/Resolved]
  - Adrenal mass [Unknown]
  - Pancreatitis acute [Unknown]
  - Granulomatous liver disease [Unknown]
